FAERS Safety Report 24062335 (Version 1)
Quarter: 2024Q3

REPORT INFORMATION
  Report Type: Spontaneous
  Country: IN (occurrence: IN)
  Receive Date: 20240708
  Receipt Date: 20240708
  Transmission Date: 20241016
  Serious: Yes (Hospitalization)
  Sender: ELI LILLY AND CO
  Company Number: IN-ELI_LILLY_AND_COMPANY-IN202407000292

PATIENT
  Sex: Female

DRUGS (1)
  1. ABEMACICLIB [Suspect]
     Active Substance: ABEMACICLIB
     Indication: Breast cancer metastatic
     Dosage: 150 MG, BID
     Route: 048

REACTIONS (4)
  - Sepsis [Recovered/Resolved]
  - Hypoxia [Recovered/Resolved]
  - Interstitial lung disease [Recovered/Resolved]
  - Neutropenia [Recovered/Resolved]
